FAERS Safety Report 5896524-0 (Version None)
Quarter: 2008Q3

REPORT INFORMATION
  Report Type: 
  Country: None (occurrence: None)
  Receive Date: 20080924
  Receipt Date: 20070711
  Transmission Date: 20090109
  Serious: No
  Sender: FDA-Public Use
  Company Number: US-BAYER-200712189BWH

PATIENT
  Age: 24 Year
  Sex: Male
  Weight: 73 kg

DRUGS (2)
  1. AVELOX [Suspect]
     Indication: SINUSITIS
     Route: 048
     Dates: start: 20070609
  2. ZITHROMAX [Concomitant]
     Indication: SINUSITIS
     Dates: start: 20070501

REACTIONS (4)
  - FACIAL PAIN [None]
  - HYPOAESTHESIA FACIAL [None]
  - PAIN [None]
  - PAIN IN EXTREMITY [None]
